FAERS Safety Report 8266949-7 (Version None)
Quarter: 2012Q2

REPORT INFORMATION
  Report Type: 
  Country: None (occurrence: None)
  Receive Date: 20120404
  Receipt Date: 20120404
  Transmission Date: 20120825
  Serious: Yes (Death)
  Sender: FDA-Public Use
  Company Number: None

PATIENT
  Age: 56 Year
  Sex: Male

DRUGS (5)
  1. PLAVIX [Concomitant]
  2. METOPROLOL TARTRATE [Concomitant]
  3. SIMVASTATIN [Concomitant]
  4. REVLIMID [Suspect]
     Indication: LEUKAEMIA PLASMACYTIC
     Dosage: 10MG QD21/28D PO
     Route: 048
     Dates: start: 20110401, end: 20111101
  5. ASPIRIN [Concomitant]

REACTIONS (3)
  - NEOPLASM PROGRESSION [None]
  - LEUKAEMIA PLASMACYTIC [None]
  - ELECTROCARDIOGRAM PR PROLONGATION [None]
